FAERS Safety Report 5196730-7 (Version None)
Quarter: 2006Q4

REPORT INFORMATION
  Report Type: 
  Country: None (occurrence: None)
  Receive Date: 20061229
  Receipt Date: 20061229
  Transmission Date: 20070319
  Serious: No
  Sender: FDA-Public Use
  Company Number: None

PATIENT

DRUGS (3)
  1. LASIX [Suspect]
     Dosage: TABLET
  2. GLIPIZIDE [Suspect]
     Dosage: TABLET
  3. PRILOSEC [Suspect]
     Dosage: CAPSULE, DELAYED RELEASE PELLETS

REACTIONS (1)
  - MEDICATION ERROR [None]
